FAERS Safety Report 9798642 (Version 1)
Quarter: 2014Q1

REPORT INFORMATION
  Report Type: Spontaneous
  Country: US (occurrence: US)
  Receive Date: 20140106
  Receipt Date: 20140106
  Transmission Date: 20141002
  Serious: Yes (Other)
  Sender: FDA-Public Use
  Company Number: US-BAYER-2014-000554

PATIENT
  Sex: 0

DRUGS (2)
  1. STIVARGA [Suspect]
  2. STIVARGA [Suspect]
     Dosage: DOCTOR CUT STIVARGA DOSE

REACTIONS (2)
  - Disease progression [None]
  - Platelet count decreased [None]
